FAERS Safety Report 17041949 (Version 1)
Quarter: 2019Q4

REPORT INFORMATION
  Report Type: Report from Study
  Country: GB (occurrence: GB)
  Receive Date: 20191118
  Receipt Date: 20191118
  Transmission Date: 20200122
  Serious: Yes (Other)
  Sender: FDA-Public Use
  Company Number: PHHY2014GB113347

PATIENT
  Age: 42 Year
  Sex: Male

DRUGS (3)
  1. GILENYA [Suspect]
     Active Substance: FINGOLIMOD HYDROCHLORIDE
     Dosage: UNK
     Route: 065
  2. GILENYA [Suspect]
     Active Substance: FINGOLIMOD HYDROCHLORIDE
     Indication: MULTIPLE SCLEROSIS
     Dosage: QD
     Route: 048
     Dates: start: 20131120, end: 201608
  3. GILENYA [Suspect]
     Active Substance: FINGOLIMOD HYDROCHLORIDE
     Dosage: UNK
     Route: 065

REACTIONS (18)
  - Escherichia urinary tract infection [Unknown]
  - Gamma-glutamyltransferase increased [Unknown]
  - Alanine aminotransferase increased [Unknown]
  - Balance disorder [Not Recovered/Not Resolved]
  - Clonus [Unknown]
  - Pain in extremity [Unknown]
  - Dermal cyst [Recovered/Resolved]
  - Muscular weakness [Unknown]
  - Musculoskeletal stiffness [Unknown]
  - Lymphocyte count decreased [Unknown]
  - Photopsia [Recovered/Resolved]
  - Muscle spasms [Unknown]
  - Limb discomfort [Recovered/Resolved]
  - Musculoskeletal stiffness [Recovered/Resolved]
  - Ear lobe infection [Unknown]
  - Blood bilirubin increased [Unknown]
  - Blood alkaline phosphatase increased [Unknown]
  - Mobility decreased [Unknown]

NARRATIVE: CASE EVENT DATE: 20140615
